FAERS Safety Report 12966197 (Version 1)
Quarter: 2016Q4

REPORT INFORMATION
  Report Type: Spontaneous
  Country: US (occurrence: US)
  Receive Date: 20161118
  Receipt Date: 20161118
  Transmission Date: 20170207
  Serious: Yes (Death)
  Sender: FDA-Public Use
  Company Number: None

PATIENT
  Age: 56 Year
  Sex: Male

DRUGS (4)
  1. ENTECAVIR 0.5MG TAB [Suspect]
     Active Substance: ENTECAVIR
     Indication: CHOLANGIOCARCINOMA
     Route: 048
     Dates: start: 20150818
  2. ONDANSETRON [Concomitant]
     Active Substance: ONDANSETRON
  3. IRBESARTAN. [Concomitant]
     Active Substance: IRBESARTAN
  4. LORAZEPAM. [Concomitant]
     Active Substance: LORAZEPAM

REACTIONS (1)
  - Death [None]

NARRATIVE: CASE EVENT DATE: 20161013
